FAERS Safety Report 10719071 (Version 2)
Quarter: 2015Q1

REPORT INFORMATION
  Report Type: Spontaneous
  Country: US (occurrence: US)
  Receive Date: 20150119
  Receipt Date: 20150119
  Transmission Date: 20150721
  Serious: No
  Sender: FDA-Public Use
  Company Number: US-UNITED THERAPEUTICS-UNT-2014-001203

PATIENT
  Age: 67 Year
  Sex: Female
  Weight: 62.59 kg

DRUGS (2)
  1. REMODULIN [Suspect]
     Active Substance: TREPROSTINIL
     Indication: COR PULMONALE CHRONIC
     Dosage: 0.086 ?G/KG, CONTINUING
     Route: 041
     Dates: start: 20130806
  2. WARFARIN [Concomitant]
     Active Substance: WARFARIN
     Indication: PRODUCT USED FOR UNKNOWN INDICATION

REACTIONS (12)
  - Dry mouth [Unknown]
  - Nausea [Unknown]
  - Drug dose omission [Recovered/Resolved]
  - Chest discomfort [Unknown]
  - Decreased appetite [Unknown]
  - Thirst [Unknown]
  - Bowel movement irregularity [Unknown]
  - Diarrhoea [Unknown]
  - Hunger [Unknown]
  - Tinnitus [Unknown]
  - Headache [Unknown]
  - Pain [Unknown]

NARRATIVE: CASE EVENT DATE: 201405
